FAERS Safety Report 5534975-4 (Version None)
Quarter: 2007Q4

REPORT INFORMATION
  Report Type: 
  Country: None (occurrence: None)
  Receive Date: 20071203
  Receipt Date: 20071116
  Transmission Date: 20080405
  Serious: Yes (Hospitalization)
  Sender: FDA-Public Use
  Company Number: 020894

PATIENT
  Age: 48 Year
  Sex: Male

DRUGS (3)
  1. CLARAVIS [Suspect]
     Indication: CYST
     Dosage: 20 MG/DAY, ORAL : 40 MG/DAY, ORAL
     Route: 048
     Dates: start: 20070901, end: 20071001
  2. CLARAVIS [Suspect]
     Indication: CYST
     Dosage: 20 MG/DAY, ORAL : 40 MG/DAY, ORAL
     Route: 048
     Dates: start: 20071020, end: 20071114
  3. MOBIC [Concomitant]

REACTIONS (11)
  - ABDOMINAL PAIN LOWER [None]
  - ABDOMINAL PAIN UPPER [None]
  - FLUSHING [None]
  - FOOD POISONING [None]
  - GASTROINTESTINAL PAIN [None]
  - HEART RATE INCREASED [None]
  - NAUSEA [None]
  - RETCHING [None]
  - SKIN FRAGILITY [None]
  - SYNCOPE [None]
  - URTICARIA [None]
